FAERS Safety Report 4527910-9 (Version None)
Quarter: 2004Q4

REPORT INFORMATION
  Report Type: 
  Country: None (occurrence: None)
  Receive Date: 20041122
  Receipt Date: 20031112
  Transmission Date: 20050328
  Serious: Yes (Life-Threatening, Hospitalization)
  Sender: FDA-Public Use
  Company Number: 100127

PATIENT
  Age: 22 Year
  Sex: Male

DRUGS (2)
  1. TESTOSTERONE [Suspect]
     Dosage: 1 ML WEEKLY IM
     Dates: start: 20031016, end: 20031106
  2. MARIJUANA [Suspect]

REACTIONS (3)
  - AGGRESSION [None]
  - ANXIETY [None]
  - RESPIRATORY ARREST [None]
